FAERS Safety Report 5419121-X (Version None)
Quarter: 2007Q3

REPORT INFORMATION
  Report Type: 
  Country: None (occurrence: None)
  Receive Date: 20070820
  Receipt Date: 20070813
  Transmission Date: 20080115
  Serious: Yes (Other)
  Sender: FDA-Public Use
  Company Number: PHBS2007GE13462

PATIENT
  Age: 11 Year
  Sex: Female
  Weight: 29 kg

DRUGS (4)
  1. AREDIA [Suspect]
     Indication: OSTEOGENESIS IMPERFECTA
     Dosage: 14.5 MG/DAY
     Route: 042
     Dates: start: 20070723
  2. AREDIA [Suspect]
     Dosage: 29 MG/DAY
     Route: 042
  3. CAD [Concomitant]
     Dosage: 500 MG, UNK
  4. SODIUM CHLORIDE [Concomitant]

REACTIONS (3)
  - BRONCHOSPASM [None]
  - CHILLS [None]
  - PYREXIA [None]
